FAERS Safety Report 23487735 (Version 2)
Quarter: 2024Q1

REPORT INFORMATION
  Report Type: Spontaneous
  Country: FR (occurrence: FR)
  Receive Date: 20240206
  Receipt Date: 20240208
  Transmission Date: 20240409
  Serious: Yes (Other)
  Sender: FDA-Public Use
  Company Number: FR-BAYER-2024A016002

PATIENT
  Age: 82 Year
  Sex: Female

DRUGS (1)
  1. EYLEA [Suspect]
     Active Substance: AFLIBERCEPT
     Indication: Age-related macular degeneration
     Dosage: UNK, 40MG/ML

REACTIONS (4)
  - Blindness [Unknown]
  - Injection site discharge [Unknown]
  - Crying [Unknown]
  - Injection site pain [Unknown]

NARRATIVE: CASE EVENT DATE: 20240118
